FAERS Safety Report 25331134 (Version 2)
Quarter: 2025Q2

REPORT INFORMATION
  Report Type: Spontaneous
  Country: JP (occurrence: JP)
  Receive Date: 20250519
  Receipt Date: 20250630
  Transmission Date: 20250716
  Serious: Yes (Other)
  Sender: NOVARTIS
  Company Number: JP-002147023-NVSJ2025JP005241

PATIENT
  Sex: Female

DRUGS (2)
  1. NEORAL [Suspect]
     Active Substance: CYCLOSPORINE
     Indication: Aplastic anaemia
     Route: 065
  2. NEORAL [Suspect]
     Active Substance: CYCLOSPORINE
     Route: 065

REACTIONS (9)
  - Paroxysmal nocturnal haemoglobinuria [Unknown]
  - Haptoglobin decreased [Unknown]
  - Blood lactate dehydrogenase increased [Unknown]
  - Aplastic anaemia [Recovering/Resolving]
  - Haemoglobin decreased [Recovering/Resolving]
  - Disease progression [Recovering/Resolving]
  - Renal disorder [Unknown]
  - Platelet count decreased [Unknown]
  - Drug ineffective [Unknown]

NARRATIVE: CASE EVENT DATE: 20160101
